FAERS Safety Report 9983983 (Version 2)
Quarter: 2014Q1

REPORT INFORMATION
  Report Type: Report from Study
  Country: US (occurrence: US)
  Receive Date: 20140307
  Receipt Date: 20140307
  Transmission Date: 20141002
  Serious: No
  Sender: FDA-Public Use
  Company Number: US-ABBVIE-13P-163-1149702-00

PATIENT
  Age: 69 Year
  Sex: Male

DRUGS (8)
  1. HUMIRA [Suspect]
     Indication: RHEUMATOID ARTHRITIS
     Route: 058
     Dates: start: 201310
  2. ANAGRELIDE [Concomitant]
     Indication: PLATELET COUNT INCREASED
  3. POTASSIUM CHLORIDE [Concomitant]
     Indication: BLOOD POTASSIUM DECREASED
  4. POTASSIUM CHLORIDE [Concomitant]
     Indication: PLATELET COUNT INCREASED
  5. ANDROGEL [Concomitant]
     Indication: BLOOD TESTOSTERONE DECREASED
     Dosage: 2 PUMPS
  6. LEXAPRO [Concomitant]
     Indication: DEPRESSION
  7. ASPIRIN [Concomitant]
     Indication: ANTICOAGULANT THERAPY
  8. ASACOL [Concomitant]
     Indication: COLITIS ULCERATIVE

REACTIONS (3)
  - Injection site pain [Recovered/Resolved]
  - Injection site haemorrhage [Not Recovered/Not Resolved]
  - Wrong technique in drug usage process [Unknown]
